FAERS Safety Report 12308244 (Version 5)
Quarter: 2016Q2

REPORT INFORMATION
  Report Type: Spontaneous
  Country: GB (occurrence: GB)
  Receive Date: 20160426
  Receipt Date: 20160616
  Transmission Date: 20160815
  Serious: Yes (Hospitalization, Other)
  Sender: FDA-Public Use
  Company Number: GB-TAKEDA-2016MPI000952

PATIENT
  Age: 67 Year
  Sex: Female
  Weight: 93 kg

DRUGS (97)
  1. VELCADE [Suspect]
     Active Substance: BORTEZOMIB
     Indication: PLASMA CELL MYELOMA
     Dosage: 2.6 MG, UNK
     Route: 058
     Dates: start: 20151102, end: 20151102
  2. VELCADE [Suspect]
     Active Substance: BORTEZOMIB
     Dosage: 2.6 MG, UNK
     Route: 058
     Dates: start: 20151112, end: 20151112
  3. PREDNISOLONE. [Suspect]
     Active Substance: PREDNISOLONE
     Indication: UPPER RESPIRATORY TRACT INFECTION
     Dosage: 5 MG, UNK
     Route: 048
     Dates: start: 2011
  4. FOLIC ACID. [Concomitant]
     Active Substance: FOLIC ACID
     Indication: PROPHYLAXIS
     Dosage: 5 MG, QD
     Route: 048
     Dates: start: 20160129
  5. LOSARTAN. [Concomitant]
     Active Substance: LOSARTAN
     Indication: HYPERTENSION
     Dosage: 100 MG, QD
     Route: 048
     Dates: start: 2010
  6. METFORMIN [Concomitant]
     Active Substance: METFORMIN HYDROCHLORIDE
     Dosage: 500 MG, BID
     Route: 048
     Dates: start: 2011, end: 20160212
  7. FLUCONAZOLE. [Concomitant]
     Active Substance: FLUCONAZOLE
     Indication: BACK PAIN
     Dosage: 1 MG, QID
     Route: 048
     Dates: start: 20151204
  8. ONDANSETRON [Concomitant]
     Active Substance: ONDANSETRON
     Indication: PROPHYLAXIS
     Dosage: 8 MG, TID
     Route: 042
     Dates: start: 20151206, end: 20151210
  9. SENNA                              /00142201/ [Concomitant]
     Active Substance: SENNA LEAF
     Indication: CONSTIPATION
     Dosage: UNK
     Route: 048
     Dates: start: 20151204
  10. ADCAL D3 [Concomitant]
     Active Substance: CALCIUM CARBONATE\CHOLECALCIFEROL
     Indication: HYPOCALCAEMIA
     Dosage: UNK, QD
     Route: 048
     Dates: start: 20160129
  11. ADCAL D3 [Concomitant]
     Active Substance: CALCIUM CARBONATE\CHOLECALCIFEROL
     Indication: PROPHYLAXIS
     Dosage: UNK, QD
     Route: 048
     Dates: start: 20160129
  12. MAGNESIUM GLYCEROPHOSPHATE [Concomitant]
     Active Substance: MAGNESIUM GLYCEROPHOSPHATE
     Indication: BLOOD MAGNESIUM DECREASED
     Dosage: 10 ML, BID
     Route: 048
     Dates: start: 20160129
  13. ZOMETA [Concomitant]
     Active Substance: ZOLEDRONIC ACID
     Indication: PLASMA CELL MYELOMA
     Dosage: 4 MG, UNK
     Route: 042
     Dates: start: 20160131
  14. PLASMA-LYTE [Concomitant]
     Active Substance: ELECTROLYTES NOS
     Indication: PROPHYLAXIS
     Dosage: UNK
     Route: 065
  15. FONDAPARINUX [Concomitant]
     Active Substance: FONDAPARINUX
     Indication: PROPHYLAXIS
     Dosage: 2.5 MG, QD
     Route: 058
     Dates: start: 20160205, end: 20160211
  16. VELCADE [Suspect]
     Active Substance: BORTEZOMIB
     Dosage: 2.6 MG, UNK
     Route: 058
     Dates: start: 20151123, end: 20151123
  17. PREDNISOLONE. [Suspect]
     Active Substance: PREDNISOLONE
     Dosage: 5 MG, UNK
     Route: 048
     Dates: start: 2011
  18. PREDNISOLONE. [Suspect]
     Active Substance: PREDNISOLONE
     Dosage: 120 MG, UNK
     Route: 048
     Dates: start: 20160202, end: 20160204
  19. PREDNISOLONE. [Suspect]
     Active Substance: PREDNISOLONE
     Dosage: 5 UNK, UNK
     Route: 048
     Dates: start: 2011
  20. DARATUMUMAB [Suspect]
     Active Substance: DARATUMUMAB
     Indication: PLASMA CELL MYELOMA
     Dosage: 1420 MG, UNK
     Route: 042
     Dates: start: 20151102, end: 20160201
  21. BISOPROLOL [Concomitant]
     Active Substance: BISOPROLOL
     Indication: HYPERTENSION
     Dosage: 25 MG, UNK
     Route: 048
     Dates: start: 2009, end: 20160205
  22. CYCLIZINE [Concomitant]
     Active Substance: CYCLIZINE
     Indication: NAUSEA
     Dosage: 50 MG, TID
     Route: 042
     Dates: start: 20151206, end: 20151210
  23. FUROSEMIDE. [Concomitant]
     Active Substance: FUROSEMIDE
     Dosage: 40 MG, QID
     Route: 048
     Dates: start: 20160112, end: 20160129
  24. SALBUTAMOL [Concomitant]
     Active Substance: ALBUTEROL
     Indication: CHRONIC OBSTRUCTIVE PULMONARY DISEASE
     Dosage: 5 MG, QID
     Route: 055
     Dates: start: 20160212
  25. ATROVENT [Concomitant]
     Active Substance: IPRATROPIUM BROMIDE
     Dosage: UNK
     Route: 055
     Dates: start: 20160212
  26. CARBOCISTEINE [Concomitant]
     Active Substance: CARBOCYSTEINE
     Indication: PROPHYLAXIS
     Dosage: 750 MG, TID
     Route: 065
     Dates: start: 20160207, end: 20160405
  27. VELCADE [Suspect]
     Active Substance: BORTEZOMIB
     Dosage: 2.6 MG, UNK
     Route: 058
     Dates: start: 20151229, end: 20151229
  28. VELCADE [Suspect]
     Active Substance: BORTEZOMIB
     Dosage: 2.6 MG, UNK
     Route: 058
     Dates: start: 20160111, end: 20160111
  29. PREDNISOLONE. [Suspect]
     Active Substance: PREDNISOLONE
     Indication: PROPHYLAXIS
     Dosage: 20 MG, UNK
     Route: 048
     Dates: start: 20151102, end: 20160201
  30. PREDNISOLONE. [Suspect]
     Active Substance: PREDNISOLONE
     Dosage: 20 UNK,
     Route: 048
     Dates: start: 20151102, end: 20160201
  31. MELPHALAN [Suspect]
     Active Substance: MELPHALAN
     Dosage: 12 MG, UNK
     Route: 048
     Dates: start: 20160201, end: 20160204
  32. OMEPRAZOLE. [Concomitant]
     Active Substance: OMEPRAZOLE
     Indication: GASTROOESOPHAGEAL REFLUX DISEASE
     Dosage: 20 MG, QD
     Route: 048
     Dates: start: 2011
  33. AMLODIPINE [Concomitant]
     Active Substance: AMLODIPINE BESYLATE
     Indication: HYPERTENSION
     Dosage: 2.5 MG, QD
     Route: 048
     Dates: start: 2005, end: 20151207
  34. ATORVASTATIN [Concomitant]
     Active Substance: ATORVASTATIN
     Indication: HYPERCHOLESTEROLAEMIA
     Dosage: 40 MG, QD
     Route: 048
     Dates: start: 2005, end: 20151207
  35. DOXYCYCLINE. [Concomitant]
     Active Substance: DOXYCYCLINE
     Indication: UPPER RESPIRATORY TRACT INFECTION
     Dosage: 100 MG, QD
     Route: 048
     Dates: start: 2011
  36. CLARITHROMYCIN. [Concomitant]
     Active Substance: CLARITHROMYCIN
     Indication: UPPER RESPIRATORY TRACT INFECTION
     Dosage: 500 MG, BID
     Route: 048
     Dates: start: 20151204, end: 20151210
  37. CO-AMOXICLAVE [Concomitant]
     Active Substance: AMOXICILLIN\CLAVULANATE POTASSIUM
     Indication: UPPER RESPIRATORY TRACT INFECTION
     Dosage: 625 MG, QID
     Route: 048
     Dates: start: 20151205, end: 20151212
  38. ALLOPURINOL. [Concomitant]
     Active Substance: ALLOPURINOL
     Dosage: 300 MG, QD
     Route: 048
     Dates: start: 20121205
  39. FUROSEMIDE. [Concomitant]
     Active Substance: FUROSEMIDE
     Indication: PERIPHERAL SWELLING
     Dosage: 40 MG, UNK
     Route: 042
     Dates: start: 20160111, end: 20160111
  40. VITAMIN B COMPLEX [Concomitant]
     Active Substance: CYANOCOBALAMIN\DEXPANTHENOL\NIACINAMIDE\PYRIDOXINE HYDROCHLORIDE\RIBOFLAVIN 5^-PHOSPHATE SODIUM\THIAMINE HYDROCHLORIDE\VITAMIN B COMPLEX
     Indication: NEUROPATHY PERIPHERAL
     Dosage: UNK
     Route: 048
     Dates: start: 20160129
  41. MAGNESIUM GLYCEROPHOSPHATE [Concomitant]
     Active Substance: MAGNESIUM GLYCEROPHOSPHATE
     Indication: PROPHYLAXIS
     Dosage: 10 ML, BID
     Route: 048
     Dates: start: 20160129
  42. CLONIDINE. [Concomitant]
     Active Substance: CLONIDINE
     Indication: HYPERTENSION
     Dosage: 750 MG, UNK
     Route: 042
     Dates: start: 20160209
  43. CLONIDINE. [Concomitant]
     Active Substance: CLONIDINE
     Dosage: UNK
     Route: 042
  44. INSULIN [Concomitant]
     Active Substance: INSULIN NOS
     Dosage: UNK
     Route: 042
  45. VELCADE [Suspect]
     Active Substance: BORTEZOMIB
     Dosage: UNK
     Route: 058
     Dates: start: 20160309
  46. VELCADE [Suspect]
     Active Substance: BORTEZOMIB
     Dosage: UNK
     Route: 058
     Dates: start: 20160208, end: 20160208
  47. MELPHALAN [Suspect]
     Active Substance: MELPHALAN
     Indication: PLASMA CELL MYELOMA
     Dosage: 12 MG, UNK
     Route: 048
     Dates: start: 20151102, end: 20160201
  48. HYDROXOCOBALAMIN [Concomitant]
     Active Substance: HYDROXOCOBALAMIN
     Indication: MACROCYTOSIS
     Dosage: 1 MG, UNK
     Route: 042
     Dates: start: 20160201, end: 20160201
  49. HYDROXOCOBALAMIN [Concomitant]
     Active Substance: HYDROXOCOBALAMIN
     Indication: PROPHYLAXIS
     Dosage: 1 MG, UNK
     Route: 042
     Dates: start: 20160201, end: 20160201
  50. FILGRASTIM [Concomitant]
     Active Substance: FILGRASTIM
     Indication: NEUTROPENIA
     Dosage: 480 ?G, QD
     Route: 058
     Dates: start: 20151113, end: 20151118
  51. LEVOTHYROXINE SODIUM. [Concomitant]
     Active Substance: LEVOTHYROXINE SODIUM
     Dosage: 50 MG, UNK
     Route: 048
     Dates: start: 1995
  52. LEVOTHYROXINE SODIUM. [Concomitant]
     Active Substance: LEVOTHYROXINE SODIUM
     Dosage: 75 MG, QD
     Route: 048
     Dates: start: 20160205
  53. LEVOTHYROXINE SODIUM. [Concomitant]
     Active Substance: LEVOTHYROXINE SODIUM
     Dosage: 75 MG, QD
     Route: 048
     Dates: start: 20160205
  54. AMOXICILLIN. [Concomitant]
     Active Substance: AMOXICILLIN
     Indication: UPPER RESPIRATORY TRACT INFECTION
     Dosage: 250 MG, TID
     Route: 048
     Dates: start: 20151204, end: 20151204
  55. ONDANSETRON [Concomitant]
     Active Substance: ONDANSETRON
     Indication: NAUSEA
     Dosage: 8 MG, TID
     Route: 042
     Dates: start: 20151206, end: 20151210
  56. FUROSEMIDE. [Concomitant]
     Active Substance: FUROSEMIDE
     Dosage: 40 MG, BID
     Route: 048
     Dates: start: 20150129, end: 20160229
  57. GLUCOSE [Concomitant]
     Active Substance: DEXTROSE
     Indication: TYPE 2 DIABETES MELLITUS
     Dosage: UNK, QD
     Route: 042
     Dates: start: 20160204
  58. GLUCOSE [Concomitant]
     Active Substance: DEXTROSE
     Dosage: UNK, QD
     Route: 042
  59. SALBUTAMOL [Concomitant]
     Active Substance: ALBUTEROL
     Dosage: UNK
     Route: 055
  60. LIDOCAINE. [Concomitant]
     Active Substance: LIDOCAINE
     Indication: PAIN PROPHYLAXIS
     Dosage: 1 UNK, UNK
     Route: 061
     Dates: start: 20151216, end: 20151217
  61. VELCADE [Suspect]
     Active Substance: BORTEZOMIB
     Dosage: 2.6 MG, UNK
     Route: 058
     Dates: start: 20151130, end: 20151130
  62. VELCADE [Suspect]
     Active Substance: BORTEZOMIB
     Dosage: 2.6 MG, UNK
     Route: 058
     Dates: start: 20151222, end: 20151222
  63. VELCADE [Suspect]
     Active Substance: BORTEZOMIB
     Dosage: 2.6 MG, UNK
     Route: 058
     Dates: start: 20160118, end: 20160118
  64. VELCADE [Suspect]
     Active Substance: BORTEZOMIB
     Dosage: UNK
     Route: 058
     Dates: start: 20160315
  65. VELCADE [Suspect]
     Active Substance: BORTEZOMIB
     Dosage: UNK
     Route: 058
     Dates: start: 20160229, end: 20160229
  66. PREDNISOLONE. [Suspect]
     Active Substance: PREDNISOLONE
     Dosage: 120 MG, UNK
     Route: 048
     Dates: start: 20160202, end: 20160204
  67. CIPROFLOXACIN. [Concomitant]
     Active Substance: CIPROFLOXACIN
     Indication: INFECTION PROPHYLAXIS
     Dosage: 500 MG, BID
     Route: 048
     Dates: start: 20151113
  68. METFORMIN [Concomitant]
     Active Substance: METFORMIN HYDROCHLORIDE
     Indication: TYPE 2 DIABETES MELLITUS
     Dosage: 500 MG, QD
     Route: 048
     Dates: start: 2011
  69. OMEPRAZOLE. [Concomitant]
     Active Substance: OMEPRAZOLE
     Indication: ANTACID THERAPY
     Dosage: 20 MG, QD
     Route: 048
     Dates: start: 2011
  70. DOXYCYCLINE. [Concomitant]
     Active Substance: DOXYCYCLINE
     Indication: PROPHYLAXIS
     Dosage: 100 MG, QD
     Route: 048
     Dates: start: 2011
  71. LEVOTHYROXINE SODIUM. [Concomitant]
     Active Substance: LEVOTHYROXINE SODIUM
     Dosage: 25 MG, UNK
     Route: 048
     Dates: start: 1995
  72. CO-DYDRAMOL [Concomitant]
     Active Substance: ACETAMINOPHEN\DIHYDROCODEINE
     Indication: BACK PAIN
     Dosage: UNK
     Route: 048
     Dates: start: 20151114
  73. MAGNOPLASM [Concomitant]
     Indication: BLOOD MAGNESIUM DECREASED
     Dosage: UNK, TID
     Route: 048
     Dates: start: 20151205, end: 20151216
  74. CYCLIZINE [Concomitant]
     Active Substance: CYCLIZINE
     Indication: PROPHYLAXIS
     Dosage: 50 MG, TID
     Route: 042
     Dates: start: 20151206, end: 20151210
  75. ATROVENT [Concomitant]
     Active Substance: IPRATROPIUM BROMIDE
     Indication: CHRONIC OBSTRUCTIVE PULMONARY DISEASE
     Dosage: UNK
     Route: 055
  76. VELCADE [Suspect]
     Active Substance: BORTEZOMIB
     Dosage: 2.6 MG, UNK
     Route: 058
     Dates: start: 20151126, end: 20151126
  77. VELCADE [Suspect]
     Active Substance: BORTEZOMIB
     Dosage: 2.6 MG, UNK
     Route: 058
     Dates: start: 20160201, end: 20160201
  78. FOLIC ACID. [Concomitant]
     Active Substance: FOLIC ACID
     Indication: MACROCYTOSIS
     Dosage: 5 MG, QD
     Route: 048
     Dates: start: 20160129
  79. ACICLOVIR [Concomitant]
     Active Substance: ACYCLOVIR
     Indication: PROPHYLAXIS
     Dosage: 400 MG, BID
     Route: 065
     Dates: start: 20151205, end: 20151216
  80. CO-AMOXICLAVE [Concomitant]
     Active Substance: AMOXICILLIN\CLAVULANATE POTASSIUM
     Indication: PROPHYLAXIS
     Dosage: 625 MG, QID
     Route: 048
     Dates: start: 20151205, end: 20151212
  81. HYDROCORTISONE. [Concomitant]
     Active Substance: HYDROCORTISONE
     Indication: PROPHYLAXIS
     Dosage: 50 MG, QID
     Route: 042
     Dates: start: 20160205, end: 20160211
  82. AUGMENTIN [Concomitant]
     Active Substance: AMOXICILLIN\CLAVULANATE POTASSIUM
     Dosage: 500 MG, BID
     Route: 048
     Dates: start: 20151205, end: 20151210
  83. VELCADE [Suspect]
     Active Substance: BORTEZOMIB
     Dosage: 2.6 MG, UNK
     Route: 058
     Dates: start: 20151105, end: 20151105
  84. VELCADE [Suspect]
     Active Substance: BORTEZOMIB
     Dosage: 2.6 MG, UNK
     Route: 058
     Dates: start: 20151109, end: 20151109
  85. ATORVASTATIN [Concomitant]
     Active Substance: ATORVASTATIN
     Dosage: 20 MG, QD
     Route: 048
     Dates: start: 20160205
  86. LEVOTHYROXINE SODIUM. [Concomitant]
     Active Substance: LEVOTHYROXINE SODIUM
     Indication: PROPHYLAXIS
     Dosage: 50 MG, UNK
     Route: 048
     Dates: start: 1995
  87. PARACETAMOL [Concomitant]
     Active Substance: ACETAMINOPHEN
     Indication: BACK PAIN
     Dosage: 1 G, QID
     Route: 048
     Dates: start: 20151204
  88. OXYCONTIN [Concomitant]
     Active Substance: OXYCODONE HYDROCHLORIDE
     Indication: NEURALGIA
     Dosage: 5 MG, BID
     Route: 048
     Dates: start: 20160129
  89. INSULIN [Concomitant]
     Active Substance: INSULIN NOS
     Indication: TYPE 2 DIABETES MELLITUS
     Dosage: UNK, QD
     Route: 042
     Dates: start: 20160204
  90. PREDNISOLONE. [Suspect]
     Active Substance: PREDNISOLONE
     Indication: PLASMA CELL MYELOMA
     Dosage: 20 MG, UNK
     Route: 048
     Dates: start: 20151102, end: 20160201
  91. PREDNISOLONE. [Suspect]
     Active Substance: PREDNISOLONE
     Dosage: 120 MG, UNK
     Route: 048
     Dates: start: 20160202, end: 20160204
  92. ATORVASTATIN [Concomitant]
     Active Substance: ATORVASTATIN
     Indication: PROPHYLAXIS
     Dosage: 40 MG, QD
     Route: 048
     Dates: start: 2005, end: 20151207
  93. ATORVASTATIN [Concomitant]
     Active Substance: ATORVASTATIN
     Dosage: 20 MG, QD
     Route: 048
     Dates: start: 20160205
  94. LEVOTHYROXINE SODIUM. [Concomitant]
     Active Substance: LEVOTHYROXINE SODIUM
     Indication: HYPOTHYROIDISM
     Dosage: 25 MG, UNK
     Route: 048
     Dates: start: 1995
  95. OXYNORM [Concomitant]
     Active Substance: OXYCODONE HYDROCHLORIDE
     Indication: NEURALGIA
     Dosage: 5 MG, UNK
     Route: 048
     Dates: start: 20160129
  96. HYDROCORTISONE. [Concomitant]
     Active Substance: HYDROCORTISONE
     Dosage: 50 MG, BID
     Route: 042
     Dates: start: 20160212
  97. LANSOPRAZOLE. [Concomitant]
     Active Substance: LANSOPRAZOLE
     Indication: PROPHYLAXIS
     Dosage: 30 MG, QD
     Route: 065
     Dates: start: 20160204

REACTIONS (9)
  - Constipation [Unknown]
  - Peripheral swelling [Unknown]
  - Neuropathy peripheral [Unknown]
  - Atrial fibrillation [Recovered/Resolved]
  - Back pain [Unknown]
  - Acute coronary syndrome [Recovered/Resolved]
  - Lower respiratory tract infection [Unknown]
  - Sepsis [Recovered/Resolved]
  - Neutropenia [Unknown]

NARRATIVE: CASE EVENT DATE: 20151112
